FAERS Safety Report 24049911 (Version 3)
Quarter: 2024Q3

REPORT INFORMATION
  Report Type: Spontaneous
  Country: SE (occurrence: SE)
  Receive Date: 20240704
  Receipt Date: 20240716
  Transmission Date: 20241017
  Serious: Yes (Hospitalization)
  Sender: Haleon PLC
  Company Number: SE-EMA-DD-20240617-7482675-092426

PATIENT
  Age: 32 Year
  Sex: Female
  Weight: 75 kg

DRUGS (9)
  1. VOLTAREN [Suspect]
     Active Substance: DICLOFENAC SODIUM
     Indication: Pain
     Dosage: DOSE QUANTITY: 1
     Route: 065
  2. NOVALGIN (METAMIZOLE SODIUM) [Suspect]
     Active Substance: METAMIZOLE SODIUM
     Indication: Pain
     Dosage: TIME INTERVAL: 0.33333333 DAYS: (FREQUENCY: 3 TIMES, EVERY 3 DAYS)
     Route: 048
     Dates: start: 19990207, end: 19990316
  3. BAMBUTEROL HYDROCHLORIDE [Concomitant]
     Active Substance: BAMBUTEROL HYDROCHLORIDE
     Indication: Product used for unknown indication
     Dosage: FIRST ADMIN DATE WAS REPORTED AS 1995
     Route: 048
  4. PREDNISOLONE [Concomitant]
     Active Substance: PREDNISOLONE
     Indication: Product used for unknown indication
     Dosage: EVERY 2 DAYS. FIRST ADMIN DATE WAS REPORTED AS 1989
     Route: 048
  5. THEO-DUR [Concomitant]
     Active Substance: THEOPHYLLINE ANHYDROUS
     Indication: Product used for unknown indication
     Dosage: FIRST ADMIN DATE WAS REPORTED AS 1989
     Route: 048
  6. THEO-DUR [Concomitant]
     Active Substance: THEOPHYLLINE ANHYDROUS
     Route: 048
  7. SINGULAIR [Concomitant]
     Active Substance: MONTELUKAST SODIUM
     Indication: Product used for unknown indication
     Dosage: FIRST ADMIN DATE WAS REPORTED AS 1996. DOSE QUANTITY: 1
     Dates: end: 19990409
  8. PULMICORT TURBUHALER [Concomitant]
     Active Substance: BUDESONIDE
     Indication: Product used for unknown indication
  9. BRICANYL [Concomitant]
     Active Substance: TERBUTALINE SULFATE
     Indication: Product used for unknown indication
     Dosage: FREQUENCY: AS NEEDED

REACTIONS (21)
  - Myelosuppression [Recovered/Resolved]
  - C-reactive protein increased [Recovered/Resolved]
  - Herpes simplex [Unknown]
  - Oropharyngeal pain [Recovered/Resolved]
  - Agranulocytosis [Recovered/Resolved]
  - Neutropenia [Recovered/Resolved]
  - Confusional state [Recovered/Resolved]
  - Hyponatraemia [Unknown]
  - Pyrexia [Recovered/Resolved]
  - Dyspnoea [Unknown]
  - Leukopenia [Recovered/Resolved]
  - Pharyngeal swelling [Recovered/Resolved]
  - Fungal infection [Recovered/Resolved]
  - Pancytopenia [Recovered/Resolved]
  - Tonsillitis streptococcal [Unknown]
  - Diarrhoea [Unknown]
  - Feeling abnormal [Recovered/Resolved]
  - Syncope [Recovered/Resolved]
  - Myelosuppression [Recovered/Resolved]
  - Asthenia [Recovered/Resolved]
  - Rash [Unknown]

NARRATIVE: CASE EVENT DATE: 19990316
